FAERS Safety Report 7655958-4 (Version None)
Quarter: 2011Q3

REPORT INFORMATION
  Report Type: 
  Country: None (occurrence: None)
  Receive Date: 20110804
  Receipt Date: 20110720
  Transmission Date: 20111222
  Serious: Yes (Hospitalization)
  Sender: FDA-Public Use
  Company Number: JP-ROCHE-575920

PATIENT
  Sex: Female
  Weight: 37 kg

DRUGS (22)
  1. TOCILIZUMAB [Suspect]
     Route: 041
     Dates: start: 20080922, end: 20080922
  2. TOCILIZUMAB [Suspect]
     Route: 041
     Dates: start: 20090203, end: 20090203
  3. TOCILIZUMAB [Suspect]
     Route: 041
     Dates: start: 20090303, end: 20090303
  4. TOCILIZUMAB [Suspect]
     Route: 041
     Dates: start: 20090331, end: 20090331
  5. TOCILIZUMAB [Suspect]
     Route: 041
     Dates: start: 20090526, end: 20090526
  6. TOCILIZUMAB [Suspect]
     Indication: RHEUMATOID ARTHRITIS
     Route: 041
     Dates: start: 20080624, end: 20080624
  7. TOCILIZUMAB [Suspect]
     Route: 041
     Dates: start: 20080826, end: 20080826
  8. TOCILIZUMAB [Suspect]
     Route: 041
     Dates: start: 20090106, end: 20090106
  9. TOCILIZUMAB [Suspect]
     Route: 041
     Dates: start: 20090428, end: 20090428
  10. TOCILIZUMAB [Suspect]
     Route: 041
     Dates: start: 20080729, end: 20080729
  11. TOCILIZUMAB [Suspect]
     Route: 041
     Dates: start: 20081202, end: 20081202
  12. METHOTREXATE [Suspect]
     Indication: RHEUMATOID ARTHRITIS
     Route: 048
     Dates: end: 20080710
  13. ISONIAZID [Concomitant]
     Route: 048
  14. TOCILIZUMAB [Suspect]
     Route: 041
     Dates: start: 20090623
  15. METHOTREXATE [Suspect]
     Route: 048
     Dates: start: 20080812
  16. PREDNISOLONE [Suspect]
     Indication: RHEUMATOID ARTHRITIS
     Route: 048
     Dates: end: 20080710
  17. TOCILIZUMAB [Suspect]
     Route: 041
     Dates: start: 20081104, end: 20081104
  18. METHOTREXATE [Suspect]
     Route: 048
     Dates: start: 20080805, end: 20080811
  19. LANSOPRAZOLE [Concomitant]
     Dosage: FORM ORAL FORMULATION (NOT OTHERWISE SPECIFIED)
     Route: 048
  20. HALCION [Concomitant]
     Route: 048
     Dates: start: 20080807
  21. PROGRAF [Concomitant]
     Dosage: FORM: ORAL FORMULATION (NOT OTHERWISE SPECIFIED)
     Route: 048
     Dates: end: 20080710
  22. LOXONIN [Concomitant]
     Route: 048

REACTIONS (3)
  - HERPES ZOSTER [None]
  - CARDIAC TAMPONADE [None]
  - PERICARDITIS RHEUMATIC [None]
